FAERS Safety Report 6359048-2 (Version None)
Quarter: 2009Q3

REPORT INFORMATION
  Report Type: 
  Country: None (occurrence: None)
  Receive Date: 20090917
  Receipt Date: 20090908
  Transmission Date: 20100115
  Serious: Yes (Hospitalization)
  Sender: FDA-Public Use
  Company Number: US-BIOGENIDEC-2009BI028837

PATIENT
  Age: 41 Year
  Sex: Female
  Weight: 48 kg

DRUGS (9)
  1. TYSABRI [Suspect]
     Indication: MULTIPLE SCLEROSIS
     Route: 042
     Dates: start: 20070419, end: 20081222
  2. TYLENOL (CAPLET) [Concomitant]
     Indication: PAIN
     Route: 048
  3. LEXAPRO [Concomitant]
     Indication: DEPRESSION
     Route: 048
     Dates: start: 20080601
  4. GABAPENTIN [Concomitant]
     Indication: PAIN
     Route: 048
     Dates: start: 20080901
  5. ZOLPIDEM [Concomitant]
     Indication: INSOMNIA
     Route: 048
     Dates: start: 20070101
  6. PERCOCET [Concomitant]
     Indication: PAIN
     Dates: start: 20090101
  7. NYSTATIN [Concomitant]
     Dates: start: 20090101
  8. XANAX [Concomitant]
     Indication: ANXIETY
     Route: 048
     Dates: start: 20080601
  9. VALIUM [Concomitant]
     Indication: ANXIETY
     Dates: start: 20090101

REACTIONS (5)
  - ABSCESS NECK [None]
  - CORYNEBACTERIUM INFECTION [None]
  - ENTEROCOCCAL INFECTION [None]
  - INTERVERTEBRAL DISCITIS [None]
  - OSTEOMYELITIS [None]
